FAERS Safety Report 11566626 (Version 4)
Quarter: 2019Q4

REPORT INFORMATION
  Report Type: Spontaneous
  Country: US (occurrence: US)
  Receive Date: 20150929
  Receipt Date: 20191216
  Transmission Date: 20200122
  Serious: Yes (Other)
  Sender: FDA-Public Use
  Company Number: US-UCBSA-2015017874

PATIENT
  Age: 51 Year
  Sex: Female
  Weight: 63.5 kg

DRUGS (9)
  1. VITAMIN C [Concomitant]
     Active Substance: ASCORBIC ACID
     Indication: SUPPLEMENTATION THERAPY
     Dosage: 2500 MG, ONCE DAILY (QD)
     Route: 048
  2. VALSARTAN. [Concomitant]
     Active Substance: VALSARTAN
     Indication: HYPERTENSION
     Dosage: UNK, ONCE DAILY (QD)
     Route: 048
     Dates: start: 2013
  3. VITAMIN D3 [Concomitant]
     Active Substance: CHOLECALCIFEROL
     Indication: SUPPLEMENTATION THERAPY
     Dosage: 2000 MG, ONCE DAILY (QD)
     Route: 048
  4. CIMZIA [Suspect]
     Active Substance: CERTOLIZUMAB PEGOL
     Indication: CROHN^S DISEASE
     Dosage: 200 MG, EV 2 WEEKS(QOW)
     Route: 058
     Dates: start: 200903, end: 20150530
  5. PROTONIX [Concomitant]
     Active Substance: PANTOPRAZOLE SODIUM
     Indication: CROHN^S DISEASE
     Dosage: UNK, 2X/DAY (BID)
     Route: 048
     Dates: start: 2009
  6. ZYRTEC [Concomitant]
     Active Substance: CETIRIZINE HYDROCHLORIDE
     Indication: DRUG HYPERSENSITIVITY
     Dosage: UNK, ONCE DAILY (QD)
     Route: 048
     Dates: start: 200903
  7. VITAMIN B COMPLEX [Concomitant]
     Active Substance: CYANOCOBALAMIN\DEXPANTHENOL\NIACINAMIDE\PYRIDOXINE HYDROCHLORIDE\RIBOFLAVIN 5^-PHOSPHATE SODIUM\THIAMINE HYDROCHLORIDE\VITAMIN B COMPLEX
     Indication: SUPPLEMENTATION THERAPY
     Dosage: DAILY
     Route: 048
  8. ASACOL [Concomitant]
     Active Substance: MESALAMINE
     Indication: CROHN^S DISEASE
     Dosage: 6 DF, ONCE DAILY (QD); ON AN OFF SINCE 1987
     Route: 048
     Dates: start: 1987
  9. MAGNESIUM [Concomitant]
     Active Substance: MAGNESIUM
     Indication: SUPPLEMENTATION THERAPY
     Dosage: DAILY
     Route: 048

REACTIONS (6)
  - Injection site urticaria [Recovered/Resolved]
  - Sinusitis [Recovered/Resolved]
  - Rash [Recovered/Resolved]
  - Off label use [Unknown]
  - Gingivitis [Recovered/Resolved]
  - Pyrexia [Recovered/Resolved]

NARRATIVE: CASE EVENT DATE: 200903
